FAERS Safety Report 21857613 (Version 2)
Quarter: 2023Q1

REPORT INFORMATION
  Report Type: Report from Study
  Country: US (occurrence: US)
  Receive Date: 20230113
  Receipt Date: 20230228
  Transmission Date: 20230417
  Serious: No
  Sender: FDA-Public Use
  Company Number: US-ABBVIE-22K-163-4532488-00

PATIENT
  Age: 30 Year
  Sex: Female

DRUGS (3)
  1. RINVOQ [Suspect]
     Active Substance: UPADACITINIB
     Indication: Rheumatoid arthritis
     Route: 048
  2. RINVOQ [Suspect]
     Active Substance: UPADACITINIB
     Indication: Rheumatoid arthritis
     Route: 048
     Dates: start: 20220607
  3. MODERNA COVID-19 VACCINE [Concomitant]
     Active Substance: ELASOMERAN
     Indication: COVID-19 immunisation
     Dosage: FREQUENCY  1 IN ONCE
     Route: 030

REACTIONS (9)
  - Fall [Not Recovered/Not Resolved]
  - Dysmenorrhoea [Unknown]
  - Gait disturbance [Unknown]
  - Ligament rupture [Not Recovered/Not Resolved]
  - Back pain [Not Recovered/Not Resolved]
  - Rheumatoid arthritis [Not Recovered/Not Resolved]
  - COVID-19 [Recovered/Resolved]
  - COVID-19 [Unknown]
  - Spinal disorder [Not Recovered/Not Resolved]

NARRATIVE: CASE EVENT DATE: 20220915
